FAERS Safety Report 13110028 (Version 1)
Quarter: 2017Q1

REPORT INFORMATION
  Report Type: Spontaneous
  Country: US (occurrence: US)
  Receive Date: 20170112
  Receipt Date: 20170112
  Transmission Date: 20170428
  Serious: No
  Sender: FDA-Public Use
  Company Number: US-ROCHE-1101586

PATIENT
  Sex: Female

DRUGS (7)
  1. HEPARIN LOCK FLUSH [Concomitant]
     Active Substance: HEPARIN SODIUM
     Route: 065
  2. HEPARIN [Concomitant]
     Active Substance: HEPARIN SODIUM
     Route: 041
  3. MORPHINE [Concomitant]
     Active Substance: MORPHINE
     Dosage: IVP
     Route: 065
  4. LOPRESSOR [Concomitant]
     Active Substance: METOPROLOL TARTRATE
     Dosage: IVP
     Route: 065
  5. NITROGLYCERIN. [Concomitant]
     Active Substance: NITROGLYCERIN
     Route: 041
  6. HEPARIN (BOLUS) [Concomitant]
     Dosage: 500 UNITS
     Route: 040
  7. ACTIVASE [Suspect]
     Active Substance: ALTEPLASE
     Indication: ACUTE MYOCARDIAL INFARCTION
     Dosage: 15 MG INITIALLY, 50 MG OVER 30 MINUTES AND 35 MG OVER 1 HOUR
     Route: 040

REACTIONS (1)
  - Nausea [Unknown]
